FAERS Safety Report 25087996 (Version 2)
Quarter: 2025Q3

REPORT INFORMATION
  Report Type: Report from Study
  Country: US (occurrence: US)
  Receive Date: 20250318
  Receipt Date: 20250803
  Transmission Date: 20251021
  Serious: Yes (Other)
  Sender: ALEXION PHARMACEUTICALS
  Company Number: US-ASTRAZENECA-202503USA011540US

PATIENT
  Age: 25 Year
  Sex: Male

DRUGS (1)
  1. STRENSIQ [Suspect]
     Active Substance: ASFOTASE ALFA
     Indication: Phosphorus metabolism disorder
     Dosage: 2 MILLIGRAM/KILOGRAM, TIW
     Route: 065

REACTIONS (6)
  - Coeliac disease [Unknown]
  - Lipodystrophy acquired [Unknown]
  - Skin disorder [Unknown]
  - Liver disorder [Unknown]
  - Renal disorder [Unknown]
  - Tooth disorder [Unknown]
